FAERS Safety Report 14186106 (Version 2)
Quarter: 2017Q4

REPORT INFORMATION
  Report Type: Spontaneous
  Country: US (occurrence: US)
  Receive Date: 20171114
  Receipt Date: 20171122
  Transmission Date: 20180321
  Serious: No
  Sender: FDA-Public Use
  Company Number: US-GLAXOSMITHKLINE-US2017GSK174067

PATIENT
  Sex: Male

DRUGS (4)
  1. REQUIP XL [Suspect]
     Active Substance: ROPINIROLE HYDROCHLORIDE
     Indication: DRUG PRESCRIBING ERROR
  2. REQUIP XL [Suspect]
     Active Substance: ROPINIROLE HYDROCHLORIDE
     Indication: WRONG DRUG ADMINISTERED
     Dosage: DOSE/STRENGTH 4 MG
     Dates: start: 20171103, end: 20171105
  3. VENTOLIN HFA [Concomitant]
     Active Substance: ALBUTEROL SULFATE
  4. BREO ELLIPTA [Concomitant]
     Active Substance: FLUTICASONE FUROATE\VILANTEROL TRIFENATATE

REACTIONS (7)
  - Decreased appetite [Unknown]
  - Anxiety [Unknown]
  - Drug prescribing error [Unknown]
  - Feeling abnormal [Unknown]
  - Nausea [Unknown]
  - Wrong drug administered [Unknown]
  - Drug dispensing error [Unknown]
